FAERS Safety Report 15947802 (Version 1)
Quarter: 2019Q1

REPORT INFORMATION
  Report Type: Spontaneous
  Country: US (occurrence: US)
  Receive Date: 20190212
  Receipt Date: 20190212
  Transmission Date: 20190417
  Serious: No
  Sender: FDA-Public Use
  Company Number: US-TEVA-2019-US-999950

PATIENT
  Sex: Female

DRUGS (1)
  1. FLUDROCORTISONE ACETATE TABLETS, USP [Suspect]
     Active Substance: FLUDROCORTISONE ACETATE
     Indication: HORMONE REPLACEMENT THERAPY
     Route: 065

REACTIONS (2)
  - Therapy cessation [Unknown]
  - Malaise [Unknown]
